FAERS Safety Report 7456511-8 (Version None)
Quarter: 2011Q2

REPORT INFORMATION
  Report Type: 
  Country: None (occurrence: None)
  Receive Date: 20110503
  Receipt Date: 20110421
  Transmission Date: 20111010
  Serious: Yes (Other)
  Sender: FDA-Public Use
  Company Number: PHHY2011US36809

PATIENT
  Sex: Female

DRUGS (1)
  1. GILENYA [Suspect]
     Indication: MULTIPLE SCLEROSIS
     Dosage: 0.5 MG, EVERYDAY
     Route: 048
     Dates: start: 20110222

REACTIONS (3)
  - VISUAL IMPAIRMENT [None]
  - RETINAL DISORDER [None]
  - EYE INFLAMMATION [None]
